FAERS Safety Report 10283722 (Version 1)
Quarter: 2014Q3

REPORT INFORMATION
  Report Type: Spontaneous
  Country: FR (occurrence: FR)
  Receive Date: 20140708
  Receipt Date: 20140708
  Transmission Date: 20150326
  Serious: Yes (Hospitalization)
  Sender: FDA-Public Use
  Company Number: FR-PFIZER INC-2014186339

PATIENT
  Age: 45 Year
  Sex: Male

DRUGS (8)
  1. MODANE [Concomitant]
     Dosage: 1 DF IN THE EVENING
     Route: 048
  2. EFFEXOR LP [Suspect]
     Active Substance: VENLAFAXINE HYDROCHLORIDE
     Dosage: 75 MG, 1X/DAY
     Route: 048
  3. LYRICA [Concomitant]
     Active Substance: PREGABALIN
     Dosage: 75 MG, 2X/DAY IN THE MORNING AND IN THE EVENING
     Route: 048
  4. RIVOTRIL [Concomitant]
     Active Substance: CLONAZEPAM
     Dosage: 2 DROPS IN THE MORNING, 4 DROPS AT NOON AND 5 DROPS IN THE EVENING
     Route: 048
  5. PREVISCAN [Suspect]
     Active Substance: FLUINDIONE
     Dosage: 3/4 TABLET/DAY IN ALTERNANCE WITH 1/2 TABLET/DAY
     Route: 048
     Dates: start: 201405, end: 20140611
  6. XYZALL [Concomitant]
     Active Substance: LEVOCETIRIZINE DIHYDROCHLORIDE
     Dosage: 5 MG, 1X/DAY
     Route: 048
  7. LAMALINE [Concomitant]
     Active Substance: ACETAMINOPHEN\CAFFEINE\OPIUM
     Dosage: 1 DF, 3X/DAY IN THE MORNING, AT NOON AND IN THE EVENING
     Route: 048
  8. PARIET [Concomitant]
     Active Substance: RABEPRAZOLE SODIUM
     Dosage: 10 MG, 1X/DAY IN THE EVENING
     Route: 048

REACTIONS (1)
  - Haemorrhagic stroke [Recovered/Resolved]

NARRATIVE: CASE EVENT DATE: 20140611
